FAERS Safety Report 18247288 (Version 2)
Quarter: 2020Q4

REPORT INFORMATION
  Report Type: Spontaneous
  Country: US (occurrence: US)
  Receive Date: 20200909
  Receipt Date: 20201028
  Transmission Date: 20210113
  Serious: No
  Sender: FDA-Public Use
  Company Number: US-ASTRAZENECA-2020SF13132

PATIENT
  Sex: Female
  Weight: 73.9 kg

DRUGS (3)
  1. HUMALOG [Concomitant]
     Active Substance: INSULIN LISPRO
  2. BASAGLAR [Concomitant]
     Active Substance: INSULIN GLARGINE
  3. BYDUREON BCISE [Suspect]
     Active Substance: EXENATIDE
     Indication: DIABETES MELLITUS
     Route: 058
     Dates: start: 202005

REACTIONS (7)
  - Injection site haemorrhage [Unknown]
  - Intentional device misuse [Unknown]
  - Incorrect dose administered by device [Unknown]
  - Device defective [Unknown]
  - Drug dose omission by device [Unknown]
  - Injection site bruising [Unknown]
  - Illness [Unknown]
